FAERS Safety Report 10525256 (Version 6)
Quarter: 2017Q4

REPORT INFORMATION
  Report Type: Spontaneous
  Country: US (occurrence: US)
  Receive Date: 20141017
  Receipt Date: 20171117
  Transmission Date: 20180320
  Serious: Yes (Hospitalization, Other)
  Sender: FDA-Public Use
  Company Number: US-009507513-0807USA03756

PATIENT
  Sex: Female

DRUGS (3)
  1. ALENDRONATE SODIUM. [Suspect]
     Active Substance: ALENDRONATE SODIUM
     Indication: OSTEOPOROSIS
     Dosage: 70 MG, QW
     Route: 048
     Dates: start: 201210, end: 201402
  2. FOSAMAX [Suspect]
     Active Substance: ALENDRONATE SODIUM
     Indication: OSTEOPOROSIS
     Dosage: 70 MG, QW
     Route: 048
     Dates: start: 200110, end: 201210
  3. FOSAMAX [Suspect]
     Active Substance: ALENDRONATE SODIUM
     Indication: OSTEOPOROSIS
     Dosage: 10 MG, QD
     Route: 048
     Dates: start: 200101, end: 200110

REACTIONS (13)
  - Pleural effusion [Unknown]
  - Arthritis [Unknown]
  - Bronchitis [Unknown]
  - Diabetes mellitus [Unknown]
  - Drug administration error [Unknown]
  - Oxygen consumption increased [Unknown]
  - Femur fracture [Unknown]
  - Fluid overload [Unknown]
  - Low turnover osteopathy [Unknown]
  - Hypertension [Unknown]
  - Wrist fracture [Unknown]
  - Dysuria [Unknown]
  - Blood cholesterol increased [Unknown]

NARRATIVE: CASE EVENT DATE: 2003
